FAERS Safety Report 13274804 (Version 2)
Quarter: 2020Q2

REPORT INFORMATION
  Report Type: Spontaneous
  Country: NZ (occurrence: NZ)
  Receive Date: 20170227
  Receipt Date: 20200621
  Transmission Date: 20200713
  Serious: Yes (Hospitalization)
  Sender: FDA-Public Use
  Company Number: NZ-ELI_LILLY_AND_COMPANY-NZ201702006331

PATIENT
  Age: 42 Year
  Sex: Male

DRUGS (1)
  1. ZYPREXA RELPREVV [Suspect]
     Active Substance: OLANZAPINE PAMOATE
     Indication: SCHIZOAFFECTIVE DISORDER
     Dosage: 405 MG, MONTHLY (1/M)
     Route: 030

REACTIONS (5)
  - Muscular weakness [Recovered/Resolved]
  - Dyskinesia [Recovered/Resolved]
  - Post-injection delirium sedation syndrome [Recovered/Resolved]
  - Depressed level of consciousness [Recovered/Resolved]
  - Hyperreflexia [Recovered/Resolved]

NARRATIVE: CASE EVENT DATE: 20161021
